FAERS Safety Report 9248955 (Version 1)
Quarter: 2013Q2

REPORT INFORMATION
  Report Type: Spontaneous
  Country: GB (occurrence: GB)
  Receive Date: 20130423
  Receipt Date: 20130426
  Transmission Date: 20140414
  Serious: Yes (Other)
  Sender: FDA-Public Use
  Company Number: GB-SANOFI-AVENTIS-2013SA020447

PATIENT
  Age: 70 Year
  Sex: Male

DRUGS (1)
  1. CLEXANE FORTE [Suspect]
     Indication: DEEP VEIN THROMBOSIS
     Dosage: FORM: SYRINGE DOSE:150 MILLIGRAM(S)/MILLILITRE
     Route: 065
     Dates: start: 20130116, end: 201302

REACTIONS (5)
  - Dyspnoea at rest [Recovered/Resolved]
  - Palpitations [Recovered/Resolved]
  - Heart rate increased [Recovered/Resolved]
  - Tremor [Recovered/Resolved]
  - Cold sweat [Recovered/Resolved]
